FAERS Safety Report 25299474 (Version 2)
Quarter: 2025Q2

REPORT INFORMATION
  Report Type: Spontaneous
  Country: CA (occurrence: CA)
  Receive Date: 20250512
  Receipt Date: 20250515
  Transmission Date: 20250716
  Serious: Yes (Other)
  Sender: TAKEDA
  Company Number: CA-JNJFOC-20250506404

PATIENT
  Age: 44 Year
  Sex: Male

DRUGS (3)
  1. BORTEZOMIB [Suspect]
     Active Substance: BORTEZOMIB
     Indication: Antisynthetase syndrome
  2. DARATUMUMAB\HYALURONIDASE-FIHJ [Suspect]
     Active Substance: DARATUMUMAB\HYALURONIDASE-FIHJ
     Indication: Antisynthetase syndrome
     Dosage: 1800 MILLIGRAM/KILOGRAM, 1/WEEK
  3. PREDNISONE [Suspect]
     Active Substance: PREDNISONE
     Indication: Antisynthetase syndrome
     Dosage: 30 MILLIGRAM, QD

REACTIONS (2)
  - Pneumonia bacterial [Unknown]
  - Off label use [Unknown]
